FAERS Safety Report 24221312 (Version 1)
Quarter: 2024Q3

REPORT INFORMATION
  Report Type: Spontaneous
  Country: CA (occurrence: CA)
  Receive Date: 20240819
  Receipt Date: 20240819
  Transmission Date: 20241016
  Serious: Yes (Other)
  Sender: NOVO NORDISK
  Company Number: CA-NOVOPROD-1267100

PATIENT
  Age: 72 Year
  Sex: Female

DRUGS (2)
  1. OZEMPIC [Suspect]
     Active Substance: SEMAGLUTIDE
     Indication: Product used for unknown indication
     Dosage: UNK
     Dates: start: 20240617
  2. OZEMPIC [Suspect]
     Active Substance: SEMAGLUTIDE
     Dosage: 0.5

REACTIONS (2)
  - Blood pressure decreased [Unknown]
  - Syncope [Unknown]
